FAERS Safety Report 9364007 (Version 4)
Quarter: 2013Q4

REPORT INFORMATION
  Report Type: Report from Study
  Country: US (occurrence: US)
  Receive Date: 20130624
  Receipt Date: 20131205
  Transmission Date: 20140711
  Serious: Yes (Other)
  Sender: FDA-Public Use
  Company Number: US-SANOFI-AVENTIS-2013SA062574

PATIENT
  Age: 39 Year
  Sex: Female

DRUGS (9)
  1. AUBAGIO [Suspect]
     Indication: MULTIPLE SCLEROSIS
     Route: 048
     Dates: start: 20130523, end: 20131125
  2. WARFARIN [Suspect]
     Dosage: DOSE REDUCED FROM 6 MG TO 3 MG
     Route: 065
  3. MODAFINIL [Suspect]
     Route: 065
  4. PRILOSEC [Concomitant]
     Route: 065
  5. SIMVASTATIN [Concomitant]
     Route: 065
  6. TRICOR [Concomitant]
     Route: 065
  7. OXYCODONE [Concomitant]
     Route: 065
  8. TRAMADOL [Concomitant]
     Route: 065
  9. BACLOFEN [Concomitant]
     Route: 065

REACTIONS (8)
  - Cardiac flutter [Not Recovered/Not Resolved]
  - Presyncope [Not Recovered/Not Resolved]
  - Rash generalised [Recovering/Resolving]
  - International normalised ratio increased [Unknown]
  - Influenza like illness [Not Recovered/Not Resolved]
  - Blood pressure increased [Not Recovered/Not Resolved]
  - Alopecia [Not Recovered/Not Resolved]
  - Sinus headache [Unknown]
